FAERS Safety Report 5430673-6 (Version None)
Quarter: 2007Q3

REPORT INFORMATION
  Report Type: 
  Country: None (occurrence: None)
  Receive Date: 20070830
  Receipt Date: 20070823
  Transmission Date: 20080115
  Serious: Yes (Other)
  Sender: FDA-Public Use
  Company Number: US-JNJFOC-20070805265

PATIENT
  Sex: Male
  Weight: 89.36 kg

DRUGS (10)
  1. REMICADE [Suspect]
     Indication: CROHN'S DISEASE
     Route: 042
  2. DARVOCET-N 100 [Concomitant]
  3. CENTRUM [Concomitant]
  4. LORAZEPAM [Concomitant]
  5. LOTRISONE [Concomitant]
  6. PENTASA [Concomitant]
  7. PLAVIX [Concomitant]
  8. PRILOSEC [Concomitant]
  9. ASPIRIN [Concomitant]
  10. PREDNISONE [Concomitant]

REACTIONS (1)
  - KAPOSI'S SARCOMA [None]
